FAERS Safety Report 15439056 (Version 1)
Quarter: 2018Q3

REPORT INFORMATION
  Report Type: Report from Study
  Country: IN (occurrence: IN)
  Receive Date: 20180928
  Receipt Date: 20180928
  Transmission Date: 20181010
  Serious: Yes (Hospitalization)
  Sender: FDA-Public Use
  Company Number: IN-ROCHE-2126075

PATIENT
  Age: 70 Year
  Sex: Female
  Weight: 54.5 kg

DRUGS (30)
  1. CARBOPLATIN. [Suspect]
     Active Substance: CARBOPLATIN
     Indication: BREAST CANCER
     Dosage: DATE OF LATEST DOSE OF CARBOPLATIN PRIOR TO THE ADVERSE EVENTS (SEVERE FATIGUE, SECOND EPISODE OF TH
     Route: 042
     Dates: start: 20180509
  2. FORCAN [Concomitant]
     Dosage: AS PROPHYLACTIC ANTIBIOTIC
     Route: 048
     Dates: start: 20180909, end: 20180910
  3. PANTOP [Concomitant]
     Active Substance: PANTOPRAZOLE SODIUM
     Dosage: AS ANTACID
     Route: 042
     Dates: start: 20180901, end: 20180907
  4. LEVOFLOX [Concomitant]
     Active Substance: LEVOFLOXACIN
     Route: 048
     Dates: start: 20180509, end: 20180515
  5. PROVIDAC [Concomitant]
     Indication: IRRITABLE BOWEL SYNDROME
     Route: 048
     Dates: start: 20180911, end: 20180913
  6. METROGYL [Concomitant]
     Active Substance: METRONIDAZOLE
     Indication: DIARRHOEA
     Route: 042
     Dates: start: 20180906, end: 20180908
  7. TRASTUZUMAB. [Suspect]
     Active Substance: TRASTUZUMAB
     Indication: BREAST CANCER
     Dosage: DATE OF LATEST DOSE OF TRASTUZUMAB PRIOR TO THE ADVERSE EVENTS (SEVERE FATIGUE, SECOND EPISODE OF TH
     Route: 042
     Dates: start: 20180509
  8. PERFALGAN [Concomitant]
     Active Substance: ACETAMINOPHEN
     Indication: PYREXIA
     Route: 042
     Dates: start: 20180901, end: 20180901
  9. CIPLOX TZ [Concomitant]
     Dosage: AS PROPHYLACTIC ANTIBIOTIC
     Route: 048
     Dates: start: 20180908, end: 20180910
  10. CALCIUM GLUCONATE. [Concomitant]
     Active Substance: CALCIUM GLUCONATE
     Indication: HYPOCALCAEMIA
     Route: 042
     Dates: start: 20180902, end: 20180902
  11. LINEZOLID. [Concomitant]
     Active Substance: LINEZOLID
     Indication: ENTEROCOCCAL INFECTION
     Route: 042
     Dates: start: 20180901, end: 20180908
  12. PROVIDAC [Concomitant]
     Route: 048
     Dates: start: 20180914, end: 20180914
  13. URSOCOL [Concomitant]
     Route: 048
     Dates: start: 20180912, end: 20180913
  14. DOCETAXEL. [Suspect]
     Active Substance: DOCETAXEL
     Indication: BREAST CANCER
     Dosage: DATE OF LATEST DOSE OF DOCETAXEL PRIOR TO THE ADVERSE EVENTS (SEVERE FATIGUE, SECOND EPISODE OF THRO
     Route: 042
     Dates: start: 20180509
  15. GRAFEEL [Concomitant]
     Route: 048
     Dates: start: 20180511, end: 20180515
  16. RAZO D [Concomitant]
     Dosage: AS ANTACID
     Route: 048
     Dates: start: 20180906, end: 20180910
  17. PERFALGAN [Concomitant]
     Active Substance: ACETAMINOPHEN
     Indication: PAIN
     Route: 042
     Dates: start: 20180906, end: 20180906
  18. REDOTIL [Concomitant]
     Indication: DIARRHOEA
     Route: 048
     Dates: start: 20180906, end: 20180910
  19. SHELCAL [Concomitant]
     Dosage: FOR CALCIUM
     Route: 048
     Dates: start: 20180914, end: 20180914
  20. URSOCOL [Concomitant]
     Indication: HEPATIC FUNCTION ABNORMAL
     Route: 048
     Dates: start: 20180911, end: 20180911
  21. LASIX [Concomitant]
     Active Substance: FUROSEMIDE
     Indication: HYPERTENSION
     Route: 042
     Dates: start: 20180913, end: 20180913
  22. PERINORM [Concomitant]
     Route: 048
     Dates: start: 20180509, end: 20180515
  23. EMESET [Concomitant]
     Active Substance: ONDANSETRON HYDROCHLORIDE
     Route: 048
     Dates: start: 20180509, end: 20180515
  24. MAGNESIUM SULPHATE [Concomitant]
     Active Substance: MAGNESIUM SULFATE
     Route: 042
     Dates: start: 20180515
  25. MAGNESIUM SULPHATE [Concomitant]
     Active Substance: MAGNESIUM SULFATE
     Dosage: FOR HYPMAGNESIUM
     Route: 042
     Dates: start: 20180902, end: 20180908
  26. SPORLAC [Concomitant]
     Indication: DIARRHOEA
     Route: 048
     Dates: start: 20180906, end: 20180910
  27. SHELCAL [Concomitant]
     Dosage: FOR CALCIUM
     Route: 048
     Dates: start: 20180911, end: 20180913
  28. EMESET [Concomitant]
     Active Substance: ONDANSETRON HYDROCHLORIDE
     Indication: VOMITING
     Route: 042
     Dates: start: 20180907, end: 20180907
  29. DOLO (INDIA) [Concomitant]
     Indication: PAIN
     Route: 048
     Dates: start: 20180515
  30. PERFALGAN [Concomitant]
     Active Substance: ACETAMINOPHEN
     Route: 042
     Dates: start: 20180902, end: 20180905

REACTIONS (4)
  - Hyponatraemia [Recovering/Resolving]
  - Neutropenia [Recovered/Resolved]
  - Thrombocytopenia [Recovered/Resolved]
  - Fatigue [Recovered/Resolved]

NARRATIVE: CASE EVENT DATE: 20180515
